FAERS Safety Report 6520759-7 (Version None)
Quarter: 2009Q4

REPORT INFORMATION
  Report Type: 
  Country: None (occurrence: None)
  Receive Date: 20091229
  Receipt Date: 20091222
  Transmission Date: 20100525
  Serious: Yes (Other)
  Sender: FDA-Public Use
  Company Number: CA-JNJFOC-20091206153

PATIENT
  Sex: Female
  Weight: 50 kg

DRUGS (11)
  1. REMICADE [Suspect]
     Route: 042
  2. REMICADE [Suspect]
     Indication: CROHN'S DISEASE
     Route: 042
  3. METHOTREXATE [Concomitant]
     Route: 048
  4. VITAMIN B-12 [Concomitant]
  5. PANTOPRAZOLE [Concomitant]
     Route: 048
  6. CELEXA [Concomitant]
     Route: 048
  7. DIFLUCAN [Concomitant]
  8. FOLIC ACID [Concomitant]
     Route: 048
  9. HYDROCORTISONE [Concomitant]
     Indication: PREMEDICATION
  10. TYLENOL (CAPLET) [Concomitant]
     Indication: PREMEDICATION
  11. BENADRYL [Concomitant]
     Indication: PREMEDICATION

REACTIONS (7)
  - BODY TEMPERATURE INCREASED [None]
  - CHEST DISCOMFORT [None]
  - DYSPNOEA [None]
  - FLUSHING [None]
  - INFUSION RELATED REACTION [None]
  - PRURITUS [None]
  - SWELLING FACE [None]
